FAERS Safety Report 8085024-8 (Version None)
Quarter: 2012Q1

REPORT INFORMATION
  Report Type: 
  Country: None (occurrence: None)
  Receive Date: 20120128
  Receipt Date: 20110313
  Transmission Date: 20120608
  Serious: No
  Sender: FDA-Public Use
  Company Number: US-ABBOTT-11P-163-0711117-00

PATIENT
  Age: 40 Year
  Sex: Female

DRUGS (5)
  1. PROBIOTIC [Concomitant]
     Indication: RASH
  2. HUMIRA [Suspect]
     Indication: RHEUMATOID ARTHRITIS
     Dates: start: 20091101
  3. PROBIOTIC [Concomitant]
     Indication: ANTIBIOTIC THERAPY
  4. FOLIC ACID [Concomitant]
     Indication: RHEUMATOID ARTHRITIS
  5. ARABA [Concomitant]
     Indication: RHEUMATOID ARTHRITIS

REACTIONS (3)
  - SINUS HEADACHE [None]
  - SINUSITIS [None]
  - RASH [None]
